FAERS Safety Report 18812893 (Version 1)
Quarter: 2021Q1

REPORT INFORMATION
  Report Type: Spontaneous
  Country: CA (occurrence: CA)
  Receive Date: 20210131
  Receipt Date: 20210131
  Transmission Date: 20210419
  Serious: Yes (Hospitalization, Other)
  Sender: FDA-Public Use
  Company Number: CA-PURDUE-USA-2020-0197571

PATIENT
  Sex: Female

DRUGS (1)
  1. OXYCONTIN [Suspect]
     Active Substance: OXYCODONE HYDROCHLORIDE
     Indication: PRODUCT USED FOR UNKNOWN INDICATION
     Dosage: UNKNOWN
     Route: 048

REACTIONS (12)
  - Developmental delay [Unknown]
  - Drug dependence [Unknown]
  - Pain [Unknown]
  - Anxiety [Unknown]
  - Cardiac disorder [Unknown]
  - Reflux gastritis [Unknown]
  - Learning disability [Unknown]
  - Overdose [Unknown]
  - Constipation [Unknown]
  - Prolapse [Unknown]
  - Post-traumatic stress disorder [Unknown]
  - Depression [Unknown]
